FAERS Safety Report 8598413-X (Version None)
Quarter: 2012Q3

REPORT INFORMATION
  Report Type: 
  Country: None (occurrence: None)
  Receive Date: 20120816
  Receipt Date: 20120813
  Transmission Date: 20120928
  Serious: No
  Sender: FDA-Public Use
  Company Number: US-PFIZER INC-2012198400

PATIENT
  Age: 42 Year
  Sex: Female

DRUGS (5)
  1. CELEBREX [Suspect]
     Indication: INFLAMMATION
     Dosage: UNK
     Dates: start: 20120808, end: 20120810
  2. HYDROCODONE [Concomitant]
     Dosage: UNK
     Dates: start: 20120807
  3. DIAZEPAM [Concomitant]
     Dosage: UNK
     Dates: start: 20120807
  4. CLINDAMYCIN [Concomitant]
     Dosage: UNK
     Dates: start: 20120807
  5. LYRICA [Concomitant]
     Dosage: UNK
     Dates: start: 20120807

REACTIONS (2)
  - BLISTER [None]
  - MALAISE [None]
